FAERS Safety Report 8522008-7 (Version None)
Quarter: 2012Q3

REPORT INFORMATION
  Report Type: 
  Country: None (occurrence: None)
  Receive Date: 20120719
  Receipt Date: 20120713
  Transmission Date: 20120928
  Serious: Yes (Other)
  Sender: FDA-Public Use
  Company Number: GB-PFIZER INC-2012169119

PATIENT
  Age: 90 Year
  Sex: Female
  Weight: 78 kg

DRUGS (9)
  1. ISOSORBIDE MONONITRATE [Concomitant]
     Dates: start: 20120326
  2. SIMVASTATIN [Concomitant]
     Dates: start: 20120326
  3. FUROSEMIDE [Concomitant]
     Dates: start: 20120326
  4. LEVOTHYROXINE SODIUM [Concomitant]
     Dates: start: 20120326
  5. RAMIPRIL [Suspect]
     Dosage: UNK
     Dates: start: 20120326
  6. BISOPROLOL FUMARATE [Concomitant]
     Dates: start: 20120326
  7. CLOPIDOGREL [Concomitant]
     Dates: start: 20120420
  8. LANSOPRAZOLE [Concomitant]
     Dates: start: 20120420, end: 20120518
  9. ACETYLSALICYLIC ACID [Concomitant]
     Dates: start: 20120326

REACTIONS (2)
  - EXERCISE TEST ABNORMAL [None]
  - JOINT SWELLING [None]
